FAERS Safety Report 24035293 (Version 5)
Quarter: 2024Q4

REPORT INFORMATION
  Report Type: Spontaneous
  Country: GB (occurrence: GB)
  Receive Date: 20240701
  Receipt Date: 20241202
  Transmission Date: 20250114
  Serious: No
  Sender: PFIZER
  Company Number: GB-PFIZER INC-PV202400081468

PATIENT
  Age: 2 Year
  Sex: Male

DRUGS (1)
  1. GENOTROPIN [Suspect]
     Active Substance: SOMATROPIN
     Dosage: UNK

REACTIONS (2)
  - Device use error [Unknown]
  - Device breakage [Unknown]
